FAERS Safety Report 25597726 (Version 1)
Quarter: 2025Q3

REPORT INFORMATION
  Report Type: Spontaneous
  Country: US (occurrence: None)
  Receive Date: 20250618
  Receipt Date: 20250618
  Transmission Date: 20251021
  Serious: Yes (Disabling)
  Sender: FDA-CTU
  Company Number: None

PATIENT
  Age: 75 Year
  Sex: Female
  Weight: 65.7 kg

DRUGS (4)
  1. UNAPPROVED DRUG COSMETIC PRODUCTS [Suspect]
     Active Substance: UNAPPROVED DRUG COSMETIC PRODUCTS
     Indication: Weight control
     Dosage: OTHER QUANTITY : 1 PATCH(ES)?FREQUENCY : EVERY 4 HOURS?
     Route: 062
     Dates: start: 20250615, end: 20250617
  2. METHYLPREDNISOLONE [Concomitant]
     Active Substance: METHYLPREDNISOLONE
  3. HYDROCORTISONE [Concomitant]
     Active Substance: HYDROCORTISONE
  4. FUROSEMIDE [Concomitant]
     Active Substance: FUROSEMIDE

REACTIONS (6)
  - Dermatitis allergic [None]
  - Application site hypersensitivity [None]
  - Application site erythema [None]
  - Application site swelling [None]
  - Application site irritation [None]
  - Therapy cessation [None]

NARRATIVE: CASE EVENT DATE: 20250615
